FAERS Safety Report 17525332 (Version 1)
Quarter: 2020Q1

REPORT INFORMATION
  Report Type: Spontaneous
  Country: DE (occurrence: DE)
  Receive Date: 20200310
  Receipt Date: 20200310
  Transmission Date: 20200409
  Serious: Yes (Other)
  Sender: FDA-Public Use
  Company Number: DE-PFIZER INC-2020092921

PATIENT
  Age: 1 Day
  Sex: Female
  Weight: 3 kg

DRUGS (1)
  1. CYTOTEC [Suspect]
     Active Substance: MISOPROSTOL
     Indication: LABOUR INDUCTION
     Dosage: UNKNOWN
     Route: 064
     Dates: start: 20191114, end: 20191115

REACTIONS (3)
  - Foetal exposure during delivery [Unknown]
  - Complication of delivery [Recovered/Resolved]
  - Neonatal hypoxia [Recovered/Resolved]

NARRATIVE: CASE EVENT DATE: 20191115
